FAERS Safety Report 22794450 (Version 2)
Quarter: 2024Q4

REPORT INFORMATION
  Report Type: Report from Study
  Country: US (occurrence: US)
  Receive Date: 20230807
  Receipt Date: 20241021
  Transmission Date: 20250115
  Serious: Yes (Life-Threatening, Other)
  Sender: NOVARTIS
  Company Number: US-002147023-NVSC2023US171833

PATIENT
  Age: 60 Year
  Sex: Male
  Weight: 111.58 kg

DRUGS (1)
  1. ENTRESTO [Suspect]
     Active Substance: SACUBITRIL\VALSARTAN
     Indication: Myocardial infarction
     Dosage: UNK, QD
     Route: 048
     Dates: start: 201909, end: 202109

REACTIONS (6)
  - Blood potassium increased [Recovering/Resolving]
  - Myocardial infarction [Recovering/Resolving]
  - Kidney infection [Unknown]
  - Cough [Unknown]
  - Weight decreased [Unknown]
  - Product use in unapproved indication [Unknown]

NARRATIVE: CASE EVENT DATE: 20210801
